FAERS Safety Report 16162619 (Version 1)
Quarter: 2019Q2

REPORT INFORMATION
  Report Type: Report from Study
  Country: KR (occurrence: KR)
  Receive Date: 20190405
  Receipt Date: 20190405
  Transmission Date: 20190711
  Serious: Yes (Hospitalization)
  Sender: FDA-Public Use
  Company Number: KR-TEVA-2019-KR-1032375

PATIENT
  Age: 44 Year
  Sex: Female
  Weight: 43.2 kg

DRUGS (13)
  1. LONQUEX [Suspect]
     Active Substance: LIPEGFILGRASTIM
     Indication: NEUTROPENIA
     Dosage: PREFILLED INJ,THE DATE OF LAST ADMINISTRATION: 04-DEC-2018
     Route: 058
     Dates: start: 20181023
  2. MACPERAN TAB [Concomitant]
     Dosage: 15 MILLIGRAM DAILY;
     Route: 048
     Dates: start: 20181112, end: 20181116
  3. DEXAMETHASONE TAB. 0.5 MG [Concomitant]
     Dosage: 8 TABLETS
     Route: 048
     Dates: start: 20181022, end: 20181024
  4. BEARSE TAB [Concomitant]
     Dosage: 3 DOSAGE FORMS DAILY; 1 DOSAGE FORM= 1 TABLET
     Route: 048
     Dates: start: 20181112, end: 20181121
  5. ONSETRON INJ [Concomitant]
     Indication: PROPHYLAXIS
     Dosage: 8 MILLIGRAM DAILY;
     Route: 042
     Dates: start: 20181112, end: 20181112
  6. HUONS HEPARIN SODIUM INJECTION 100 IU [Concomitant]
     Dosage: 100 IU (INTERNATIONAL UNIT) DAILY; 1 OTHERS VIAL
     Route: 042
     Dates: start: 20181112, end: 20181112
  7. ADRIAMYCIN [Suspect]
     Active Substance: DOXORUBICIN HYDROCHLORIDE
     Route: 065
     Dates: start: 20181022
  8. MACPERAN TAB [Concomitant]
     Indication: PROPHYLAXIS
     Dosage: 15 MILLIGRAM DAILY;
     Route: 048
     Dates: start: 20181023, end: 20181026
  9. DEXAMETHASONE TAB. 0.5 MG [Concomitant]
     Dosage: 8 TABLETS
     Route: 048
     Dates: start: 20181112, end: 20181114
  10. EMEND IV INJ 150 MG [Concomitant]
     Indication: PROPHYLAXIS
     Dosage: 150 MILLIGRAM DAILY; 1 OTHERS VIAL
     Route: 042
     Dates: start: 20181112, end: 20181112
  11. BEARSE TAB [Concomitant]
     Indication: PROPHYLAXIS
     Dosage: 3 DOSAGE FORMS DAILY; 1 DOSAGE FORM= 1 TABLET
     Route: 048
     Dates: start: 20181022, end: 20181111
  12. CYCLOPHOSPHAMIDE. [Suspect]
     Active Substance: CYCLOPHOSPHAMIDE
     Route: 065
     Dates: start: 20181022
  13. STILLEN TAB [Concomitant]
     Indication: PROPHYLAXIS
     Dosage: 3 DOSAGE FORMS DAILY; 1 DOSAGE FORM= 1 TABLET
     Route: 048
     Dates: start: 20181022, end: 20181111

REACTIONS (1)
  - Febrile neutropenia [Recovered/Resolved]

NARRATIVE: CASE EVENT DATE: 20181117
